FAERS Safety Report 24897358 (Version 1)
Quarter: 2025Q1

REPORT INFORMATION
  Report Type: Spontaneous
  Country: US (occurrence: US)
  Receive Date: 20250129
  Receipt Date: 20250129
  Transmission Date: 20250408
  Serious: Yes (Other)
  Sender: NOVO NORDISK
  Company Number: US-NOVOPROD-1357116

PATIENT
  Sex: Female
  Weight: 66.224 kg

DRUGS (1)
  1. SAXENDA [Suspect]
     Active Substance: LIRAGLUTIDE
     Indication: Weight control
     Route: 058
     Dates: start: 2023

REACTIONS (3)
  - Gallbladder operation [Unknown]
  - Thirst [Unknown]
  - Constipation [Unknown]

NARRATIVE: CASE EVENT DATE: 20231001
